FAERS Safety Report 4776328-2 (Version None)
Quarter: 2005Q3

REPORT INFORMATION
  Report Type: 
  Country: None (occurrence: None)
  Receive Date: 20050921
  Receipt Date: 20050905
  Transmission Date: 20060218
  Serious: Yes (Hospitalization)
  Sender: FDA-Public Use
  Company Number: 2005P1000377

PATIENT
  Age: 75 Year
  Sex: Female

DRUGS (7)
  1. RETEVASE [Suspect]
     Indication: ACUTE MYOCARDIAL INFARCTION
     Dosage: IV
     Route: 042
     Dates: start: 20041001
  2. ABCIXIMAB (ABCIXIMAB) [Suspect]
     Indication: ACUTE MYOCARDIAL INFARCTION
     Dosage: IV
     Route: 042
     Dates: start: 20041001
  3. ASPIRIN [Concomitant]
  4. METOPROLOL [Concomitant]
  5. CLOPIDOGREL [Concomitant]
  6. PERINDOPRIL [Concomitant]
  7. ATORVASTATIN [Concomitant]

REACTIONS (1)
  - CORONARY ARTERY STENOSIS [None]
